FAERS Safety Report 11329898 (Version 1)
Quarter: 2015Q3

REPORT INFORMATION
  Report Type: Spontaneous
  Country: US (occurrence: US)
  Receive Date: 20150803
  Receipt Date: 20150803
  Transmission Date: 20151125
  Serious: No
  Sender: FDA-Public Use
  Company Number: US-PFIZER INC-2015253138

PATIENT
  Sex: Female

DRUGS (2)
  1. MORPHINE SULFATE. [Suspect]
     Active Substance: MORPHINE SULFATE
     Dosage: UNKNOWN DOSE
  2. CODEINE [Suspect]
     Active Substance: CODEINE
     Dosage: UNKNOWN DOSE

REACTIONS (1)
  - Drug hypersensitivity [Unknown]
